FAERS Safety Report 6378906-6 (Version None)
Quarter: 2009Q3

REPORT INFORMATION
  Report Type: 
  Country: None (occurrence: None)
  Receive Date: 20090928
  Receipt Date: 20090826
  Transmission Date: 20100115
  Serious: No
  Sender: FDA-Public Use
  Company Number: US-BAYER-200931399NA

PATIENT
  Sex: Female

DRUGS (2)
  1. YAZ [Suspect]
     Indication: DRUG USE FOR UNKNOWN INDICATION
     Dates: start: 20081001, end: 20090601
  2. YAZ [Suspect]
     Dates: start: 20090701

REACTIONS (2)
  - MENORRHAGIA [None]
  - VAGINAL HAEMORRHAGE [None]
